FAERS Safety Report 19506885 (Version 1)
Quarter: 2021Q3

REPORT INFORMATION
  Report Type: Spontaneous
  Country: US (occurrence: US)
  Receive Date: 20210708
  Receipt Date: 20210708
  Transmission Date: 20211014
  Serious: No
  Sender: FDA-Public Use
  Company Number: None

PATIENT
  Age: 43 Year
  Sex: Female
  Weight: 51.75 kg

DRUGS (2)
  1. ELURYNG [Suspect]
     Active Substance: ETHINYL ESTRADIOL\ETONOGESTREL
     Indication: MENOPAUSAL SYMPTOMS
     Dosage: ?          QUANTITY:1 VAGINAL RING;OTHER FREQUENCY:CONTINUOUS;?
     Route: 067
     Dates: start: 20210606, end: 20210608
  2. ELURYNG [Suspect]
     Active Substance: ETHINYL ESTRADIOL\ETONOGESTREL
     Indication: MENSTRUATION IRREGULAR
     Dosage: ?          QUANTITY:1 VAGINAL RING;OTHER FREQUENCY:CONTINUOUS;?
     Route: 067
     Dates: start: 20210606, end: 20210608

REACTIONS (5)
  - Photophobia [None]
  - Nausea [None]
  - Product quality issue [None]
  - Hyperacusis [None]
  - Migraine [None]

NARRATIVE: CASE EVENT DATE: 20210608
